FAERS Safety Report 25340653 (Version 1)
Quarter: 2025Q2

REPORT INFORMATION
  Report Type: Spontaneous
  Country: FR (occurrence: FR)
  Receive Date: 20250521
  Receipt Date: 20250521
  Transmission Date: 20250716
  Serious: Yes (Other)
  Sender: AUROBINDO
  Company Number: FR-AFSSAPS-SE2025000395

PATIENT
  Age: 90 Year
  Sex: Male
  Weight: 84 kg

DRUGS (3)
  1. ERTAPENEM [Suspect]
     Active Substance: ERTAPENEM
     Indication: Klebsiella infection
     Dosage: 1 GRAM, TWO TIMES A DAY
     Route: 058
     Dates: start: 20250331, end: 20250413
  2. TRAMADOL [Concomitant]
     Active Substance: TRAMADOL
     Indication: Analgesic intervention supportive therapy
     Route: 048
     Dates: end: 20250311
  3. SERTRALINE HYDROCHLORIDE [Concomitant]
     Active Substance: SERTRALINE HYDROCHLORIDE
     Indication: Mixed anxiety and depressive disorder
     Dosage: 50 MILLIGRAM, ONCE A DAY
     Route: 048

REACTIONS (2)
  - Generalised tonic-clonic seizure [Recovered/Resolved]
  - Drug interaction [Recovered/Resolved]

NARRATIVE: CASE EVENT DATE: 20250411
